FAERS Safety Report 18000118 (Version 1)
Quarter: 2020Q3

REPORT INFORMATION
  Report Type: Spontaneous
  Country: PL (occurrence: PL)
  Receive Date: 20200709
  Receipt Date: 20200709
  Transmission Date: 20201103
  Serious: Yes (Hospitalization)
  Sender: FDA-Public Use
  Company Number: NVSC2020PL185867

PATIENT
  Age: 14 Year
  Sex: Male
  Weight: 37 kg

DRUGS (3)
  1. KLIMICIN [Suspect]
     Active Substance: CLINDAMYCIN PHOSPHATE
     Indication: CYSTIC FIBROSIS
     Dosage: 400 MG, Q8H (3X400MG)
     Route: 030
     Dates: start: 20170705, end: 20170722
  2. TRIOXAL [Suspect]
     Active Substance: ITRACONAZOLE
     Indication: CYSTIC FIBROSIS
     Dosage: 300 MG, Q24H (1X300MG)
     Route: 048
     Dates: start: 20170714, end: 20170721
  3. TAZOCIN [Suspect]
     Active Substance: PIPERACILLIN SODIUM\TAZOBACTAM SODIUM
     Indication: CYSTIC FIBROSIS
     Dosage: 4.5 G, Q8H (3X4.5G)
     Route: 042
     Dates: start: 20170704, end: 20170721

REACTIONS (3)
  - Rash maculo-papular [Recovering/Resolving]
  - Pruritus [Recovering/Resolving]
  - Pyrexia [Recovering/Resolving]

NARRATIVE: CASE EVENT DATE: 20170719
